FAERS Safety Report 4633438-8 (Version None)
Quarter: 2005Q2

REPORT INFORMATION
  Report Type: 
  Country: None (occurrence: None)
  Receive Date: 20050408
  Receipt Date: 20050221
  Transmission Date: 20051028
  Serious: Yes (Congenital Anomaly, Other)
  Sender: FDA-Public Use
  Company Number: 10758

PATIENT
  Age: 0 Day
  Sex: Female

DRUGS (1)
  1. METHOTREXATE [Suspect]
     Indication: ABORTION INDUCED
     Dosage: 100 MG ONCE

REACTIONS (14)
  - ARTHRITIS BACTERIAL [None]
  - CONGENITAL BOWING OF LONG BONES [None]
  - DRUG EXPOSURE DURING PREGNANCY [None]
  - EYELID PTOSIS CONGENITAL [None]
  - FACIAL DYSMORPHISM [None]
  - HAND DEFORMITY [None]
  - MADAROSIS [None]
  - MULTIPLE CONGENITAL ABNORMALITIES [None]
  - NEONATAL DISORDER [None]
  - SMALL FOR DATES BABY [None]
  - SYNDACTYLY [None]
  - TALIPES [None]
  - TERATOGENICITY [None]
  - THROMBOCYTOPENIA [None]
